FAERS Safety Report 4519148-6 (Version None)
Quarter: 2004Q4

REPORT INFORMATION
  Report Type: 
  Country: None (occurrence: None)
  Receive Date: 20041201
  Receipt Date: 20041117
  Transmission Date: 20050328
  Serious: Yes (Other)
  Sender: FDA-Public Use
  Company Number: 200410322

PATIENT
  Age: 75 Year
  Sex: Male

DRUGS (2)
  1. LUMIGAN [Suspect]
     Indication: OPEN ANGLE GLAUCOMA
  2. COSOPT [Concomitant]

REACTIONS (1)
  - GRAND MAL CONVULSION [None]
